FAERS Safety Report 8155167-9 (Version None)
Quarter: 2012Q1

REPORT INFORMATION
  Report Type: 
  Country: None (occurrence: None)
  Receive Date: 20120221
  Receipt Date: 20120213
  Transmission Date: 20120608
  Serious: Yes (Other)
  Sender: FDA-Public Use
  Company Number: US-ASTRAZENECA-2012SE09650

PATIENT
  Sex: Female

DRUGS (1)
  1. PRILOSEC [Suspect]
     Route: 048

REACTIONS (10)
  - SJOGREN'S SYNDROME [None]
  - EPSTEIN-BARR VIRUS INFECTION [None]
  - OVARIAN CANCER [None]
  - AUTOIMMUNE DISORDER [None]
  - RESTLESS LEGS SYNDROME [None]
  - RHEUMATOID ARTHRITIS [None]
  - DIABETES MELLITUS [None]
  - HYPOTHYROIDISM [None]
  - CHRONIC FATIGUE SYNDROME [None]
  - IDIOPATHIC THROMBOCYTOPENIC PURPURA [None]
